FAERS Safety Report 8257878-3 (Version None)
Quarter: 2012Q1

REPORT INFORMATION
  Report Type: 
  Country: None (occurrence: None)
  Receive Date: 20111211
  Receipt Date: 20111101
  Transmission Date: 20120608
  Serious: No
  Sender: FDA-Public Use
  Company Number: 201109079

PATIENT
  Age: 72 Year
  Sex: Male

DRUGS (3)
  1. XIAFLEX (CLOSTRIDIAL COLLAGENASE) [Suspect]
     Indication: DUPUYTREN'S CONTRACTURE
     Dosage: 0.58 MG, 1 IN 1 D, INTRALESIONAL 1 IN 1 D, INTRALESIONAL
     Route: 026
     Dates: start: 20110920, end: 20110920
  2. XIAFLEX (CLOSTRIDIAL COLLAGENASE) [Suspect]
     Indication: DUPUYTREN'S CONTRACTURE
     Dosage: 0.58 MG, 1 IN 1 D, INTRALESIONAL 1 IN 1 D, INTRALESIONAL
     Route: 026
     Dates: start: 20101228, end: 20101228
  3. LIDOCAINE [Suspect]
     Dosage: 5 CC, INJECTION
     Dates: start: 20110921, end: 20110921

REACTIONS (7)
  - EPIDERMOLYSIS [None]
  - ECCHYMOSIS [None]
  - SWELLING [None]
  - LACERATION [None]
  - INFECTION [None]
  - PAIN IN EXTREMITY [None]
  - BLISTER [None]
